FAERS Safety Report 22624967 (Version 2)
Quarter: 2023Q2

REPORT INFORMATION
  Report Type: Spontaneous
  Country: CN (occurrence: CN)
  Receive Date: 20230621
  Receipt Date: 20230628
  Transmission Date: 20230722
  Serious: Yes (Hospitalization, Other)
  Sender: FDA-Public Use
  Company Number: CN-PFIZER INC-PV202300107717

PATIENT
  Age: 54 Year
  Sex: Female

DRUGS (3)
  1. AXITINIB [Suspect]
     Active Substance: AXITINIB
     Indication: Renal cancer
     Dosage: 5 MG, 1X/DAY
     Route: 048
     Dates: start: 20230403, end: 20230530
  2. TISLELIZUMAB [Concomitant]
     Active Substance: TISLELIZUMAB
     Indication: Renal cancer
     Dosage: UNK
     Dates: start: 20230403
  3. TISLELIZUMAB [Concomitant]
     Active Substance: TISLELIZUMAB
     Dosage: UNK
     Dates: start: 20230424

REACTIONS (3)
  - Dermatitis allergic [Recovering/Resolving]
  - Off label use [Unknown]
  - Product use issue [Unknown]

NARRATIVE: CASE EVENT DATE: 20230403
